FAERS Safety Report 22215983 (Version 1)
Quarter: 2023Q2

REPORT INFORMATION
  Report Type: Other
  Country: US (occurrence: US)
  Receive Date: 20230417
  Receipt Date: 20230417
  Transmission Date: 20230722
  Serious: Yes (Other)
  Sender: FDA-Public Use
  Company Number: US-DENTSPLY-2023SCDP000107

PATIENT
  Sex: Male

DRUGS (2)
  1. LIDOCAINE HYDROCHLORIDE AND EPINEPHRINE BITARTRATE [Suspect]
     Active Substance: EPINEPHRINE BITARTRATE\LIDOCAINE HYDROCHLORIDE
     Indication: Local anaesthesia
     Dosage: 3 MILLILITER TOTAL LIDOCAINE 1% WITH EPINEPHRINE 1:200,000
  2. ASPIRIN [Concomitant]
     Active Substance: ASPIRIN
     Indication: Product used for unknown indication
     Dosage: 81 MILLIGRAM A DAY

REACTIONS (3)
  - Post procedural haemorrhage [Recovered/Resolved]
  - Therapeutic response shortened [Recovered/Resolved]
  - Arterial haemorrhage [Recovered/Resolved]
